FAERS Safety Report 12204788 (Version 1)
Quarter: 2016Q1

REPORT INFORMATION
  Report Type: Spontaneous
  Country: GB (occurrence: GB)
  Receive Date: 20160323
  Receipt Date: 20160323
  Transmission Date: 20160526
  Serious: Yes (Death)
  Sender: FDA-Public Use
  Company Number: GB-ACTAVIS-2016-05458

PATIENT
  Age: 47 Year
  Sex: Male

DRUGS (1)
  1. OXYCODONE [Suspect]
     Active Substance: OXYCODONE
     Indication: PAIN IN EXTREMITY
     Dosage: 2 DF, UNKNOWN(2 TABLETS UNK)
     Route: 065

REACTIONS (1)
  - Respiratory depression [Fatal]

NARRATIVE: CASE EVENT DATE: 2015
